FAERS Safety Report 6202155-5 (Version None)
Quarter: 2009Q2

REPORT INFORMATION
  Report Type: 
  Country: None (occurrence: None)
  Receive Date: 20090520
  Receipt Date: 20090507
  Transmission Date: 20091009
  Serious: Yes (Hospitalization)
  Sender: FDA-Public Use
  Company Number: 230057K09USA

PATIENT
  Age: 56 Year
  Sex: Female
  Weight: 60 kg

DRUGS (4)
  1. REBIF [Suspect]
     Indication: MULTIPLE SCLEROSIS
     Dosage: 44 MCG, 3 IN 1 WEEKS, SUBCUTANEOUS
     Route: 058
     Dates: start: 20071210, end: 20090101
  2. WELLBUTRIN (BUPROPION HYDROCHLORIDR) [Concomitant]
  3. ZOLOFT [Concomitant]
  4. NEURONTIN [Concomitant]

REACTIONS (4)
  - MALAISE [None]
  - METASTASES TO LYMPH NODES [None]
  - PNEUMONIA [None]
  - SMALL CELL LUNG CANCER STAGE UNSPECIFIED [None]
